FAERS Safety Report 12876029 (Version 1)
Quarter: 2016Q4

REPORT INFORMATION
  Report Type: Spontaneous
  Country: US (occurrence: US)
  Receive Date: 20161020
  Receipt Date: 20161020
  Transmission Date: 20170207
  Serious: Yes (Hospitalization)
  Sender: FDA-Public Use
  Company Number: None

PATIENT
  Age: 90 Year
  Sex: Female

DRUGS (1)
  1. NAFCILLIN 2 GRAM BAGS SANDOZ [Suspect]
     Active Substance: NAFCILLIN\NAFCILLIN SODIUM
     Indication: ARTHRITIS BACTERIAL
     Route: 042
     Dates: start: 20160908, end: 20160930

REACTIONS (1)
  - Acute kidney injury [None]

NARRATIVE: CASE EVENT DATE: 20160929
